FAERS Safety Report 4622028-9 (Version None)
Quarter: 2005Q1

REPORT INFORMATION
  Report Type: 
  Country: None (occurrence: None)
  Receive Date: 20050328
  Receipt Date: 20050316
  Transmission Date: 20050727
  Serious: Yes (Hospitalization, Other)
  Sender: FDA-Public Use
  Company Number: 2005046048

PATIENT
  Age: 57 Year
  Sex: Female
  Weight: 76.2043 kg

DRUGS (7)
  1. NEURONTIN [Suspect]
     Indication: NEURALGIA
     Dosage: 600 OR 800MG (1 IN 1 D), ORAL
     Route: 048
     Dates: start: 20040101, end: 20041001
  2. ETODOLAC [Suspect]
     Indication: ARTHRITIS
     Dosage: ORAL
     Route: 048
  3. SERTRALINE HCL [Concomitant]
  4. AMITRIPTYLINE HCL [Concomitant]
  5. CARVEDILOL [Concomitant]
  6. SPIRONOLACTONE [Concomitant]
  7. OLMESARTAN MEDOXOMIL (OLMESARTAN MEDOXOMIL) [Concomitant]

REACTIONS (4)
  - FEELING DRUNK [None]
  - NEURALGIA [None]
  - TREATMENT NONCOMPLIANCE [None]
  - ULCER HAEMORRHAGE [None]
